FAERS Safety Report 11156526 (Version 1)
Quarter: 2015Q2

REPORT INFORMATION
  Report Type: Spontaneous
  Country: AU (occurrence: AU)
  Receive Date: 20150602
  Receipt Date: 20150602
  Transmission Date: 20150821
  Serious: Yes (Other)
  Sender: FDA-Public Use
  Company Number: PHHY2015AU063467

PATIENT
  Age: 64 Year
  Sex: Female

DRUGS (1)
  1. LETROZOLE. [Suspect]
     Active Substance: LETROZOLE
     Indication: BREAST CANCER METASTATIC
     Dosage: UNK
     Route: 065

REACTIONS (13)
  - Breast cancer metastatic [Unknown]
  - Metastases to lymph nodes [Unknown]
  - Diverticulum intestinal [Unknown]
  - Metastases to spine [Unknown]
  - Pleural effusion [Unknown]
  - Malignant neoplasm progression [Unknown]
  - Metastases to liver [Unknown]
  - Metastases to pelvis [Unknown]
  - Metastases to bone [Unknown]
  - Diverticulitis [Unknown]
  - Uterine leiomyoma [Unknown]
  - Scar [Unknown]
  - Gamma-glutamyltransferase increased [Unknown]

NARRATIVE: CASE EVENT DATE: 20140210
